FAERS Safety Report 25922970 (Version 1)
Quarter: 2025Q4

REPORT INFORMATION
  Report Type: Spontaneous
  Country: EU (occurrence: EU)
  Receive Date: 20251015
  Receipt Date: 20251015
  Transmission Date: 20260118
  Serious: Yes (Life-Threatening)
  Sender: ACCORD
  Company Number: None

PATIENT
  Age: 53 Year
  Sex: Male
  Weight: 111 kg

DRUGS (5)
  1. FUROSEMIDE [Suspect]
     Active Substance: FUROSEMIDE
     Indication: Infection
     Dosage: TEST + ONE-OFF MEASUREMENTS, DATES UNCLEAR
     Dates: start: 20250827, end: 20250827
  2. HEPARIN [Suspect]
     Active Substance: HEPARIN SODIUM
     Indication: Infection
     Dates: start: 20250821, end: 20250829
  3. CASPOFUNGIN [Suspect]
     Active Substance: CASPOFUNGIN
     Indication: Infection
     Dates: start: 20250822, end: 20250828
  4. PROPOFOL [Suspect]
     Active Substance: PROPOFOL
     Indication: Infection
     Dates: start: 20250821, end: 20250830
  5. CASPOFUNGIN [Suspect]
     Active Substance: CASPOFUNGIN
     Indication: Infection
     Dates: start: 20250829, end: 20250901

REACTIONS (1)
  - Disseminated intravascular coagulation [Recovering/Resolving]

NARRATIVE: CASE EVENT DATE: 20250828
